FAERS Safety Report 16659529 (Version 2)
Quarter: 2019Q3

REPORT INFORMATION
  Report Type: Report from Study
  Country: DE (occurrence: DE)
  Receive Date: 20190802
  Receipt Date: 20190910
  Transmission Date: 20191004
  Serious: Yes (Hospitalization)
  Sender: FDA-Public Use
  Company Number: DE-ROCHE-2143622

PATIENT
  Age: 52 Year
  Sex: Female

DRUGS (11)
  1. OCREVUS [Suspect]
     Active Substance: OCRELIZUMAB
     Indication: SECONDARY PROGRESSIVE MULTIPLE SCLEROSIS
     Route: 042
     Dates: start: 20180615
  2. IBUPROFEN. [Suspect]
     Active Substance: IBUPROFEN
     Route: 065
     Dates: start: 20190130, end: 20190130
  3. TOLPERISONE [Concomitant]
     Active Substance: TOLPERISONE
     Route: 065
  4. TILIDIN [Concomitant]
     Active Substance: NALOXONE HYDROCHLORIDE\TILIDINE HYDROCHLORIDE
     Dosage: 1-1-2
     Route: 065
  5. OCREVUS [Suspect]
     Active Substance: OCRELIZUMAB
     Route: 042
     Dates: start: 20181212
  6. IBUPROFEN. [Suspect]
     Active Substance: IBUPROFEN
     Indication: PRODUCT USED FOR UNKNOWN INDICATION
     Route: 065
  7. DANTAMACRIN [Concomitant]
     Active Substance: DANTROLENE SODIUM
     Route: 065
  8. ZOLMITRIPTAN. [Concomitant]
     Active Substance: ZOLMITRIPTAN
     Dosage: AS REQUIRED.
     Route: 065
  9. OMEPRAZOL [OMEPRAZOLE] [Concomitant]
     Active Substance: OMEPRAZOLE
     Route: 065
  10. BACLOFEN. [Concomitant]
     Active Substance: BACLOFEN
     Route: 065
  11. TOPIRAMAT [Concomitant]
     Active Substance: TOPIRAMATE

REACTIONS (16)
  - Cholelithiasis [Recovered/Resolved]
  - Nausea [Recovered/Resolved]
  - Drug ineffective [Unknown]
  - Hypoaesthesia [Not Recovered/Not Resolved]
  - Paraesthesia [Not Recovered/Not Resolved]
  - Blood cholesterol increased [Recovered/Resolved]
  - Muscular weakness [Unknown]
  - Vomiting [Recovered/Resolved]
  - Migraine [Recovered/Resolved]
  - Joint stiffness [Not Recovered/Not Resolved]
  - Intentional product use issue [Unknown]
  - Off label use [Unknown]
  - Headache [Not Recovered/Not Resolved]
  - General physical health deterioration [Unknown]
  - Liver function test increased [Recovered/Resolved]
  - Fatigue [Recovered/Resolved]

NARRATIVE: CASE EVENT DATE: 20180615
